FAERS Safety Report 5209189-8 (Version None)
Quarter: 2006Q4

REPORT INFORMATION
  Report Type: 
  Country: None (occurrence: None)
  Receive Date: 20061229
  Receipt Date: 20061212
  Transmission Date: 20070319
  Serious: Yes (Other)
  Sender: FDA-Public Use
  Company Number: 200610409BBE

PATIENT
  Sex: 0

DRUGS (1)
  1. PLASBUMIN-5 [Suspect]
     Dosage: 100 ML TOTAL DAILY
     Dates: start: 20061118

REACTIONS (7)
  - BACTERIAL INFECTION [None]
  - HAEMOLYSIS [None]
  - PYREXIA [None]
  - STAPHYLOCOCCAL INFECTION [None]
  - THERAPEUTIC PRODUCT CONTAMINATION [None]
  - TRANSFUSION REACTION [None]
  - WRONG TECHNIQUE IN DRUG USAGE PROCESS [None]
